FAERS Safety Report 8790987 (Version 1)
Quarter: 2012Q4

REPORT INFORMATION
  Report Type: Spontaneous
  Country: US (occurrence: None)
  Receive Date: 20120910
  Receipt Date: 20120910
  Transmission Date: 20130627
  Serious: Yes (Other)
  Sender: FDA-Public Use
  Company Number: FK201202571

PATIENT
  Age: 36 Year
  Sex: Female

DRUGS (8)
  1. FLUOROURACIL [Suspect]
     Indication: COLORECTAL CANCER METASTATIC
     Dates: start: 2008, end: 2008
  2. FLUOROURACIL [Suspect]
     Indication: COLORECTAL CANCER METASTATIC
     Dates: start: 2009, end: 201004
  3. FOLINIC ACID [Suspect]
     Indication: COLORECTAL CANCER METASTATIC
     Dates: start: 2008
  4. FOLINIC ACID [Suspect]
     Indication: COLORECTAL CANCER METASTATIC
     Dates: start: 2009, end: 201004
  5. ELOXATIN [Suspect]
     Indication: COLORECTAL CANCER METASTATIC
     Dates: start: 2008, end: 2008
  6. IRINOTECAN HYDROCHLORIDE [Suspect]
     Dates: start: 2009, end: 201004
  7. XELODA [Suspect]
  8. AVASTIN [Suspect]
     Dates: start: 201106

REACTIONS (1)
  - Metastases to lung [None]
